FAERS Safety Report 5901149-4 (Version None)
Quarter: 2008Q3

REPORT INFORMATION
  Report Type: 
  Country: None (occurrence: None)
  Receive Date: 20080929
  Receipt Date: 20080920
  Transmission Date: 20090109
  Serious: Yes (Hospitalization, Other)
  Sender: FDA-Public Use
  Company Number: US-AMGEN-QUU309047

PATIENT
  Sex: Female

DRUGS (3)
  1. ENBREL [Suspect]
     Indication: PSORIATIC ARTHROPATHY
     Route: 058
  2. ENBREL [Suspect]
     Indication: PSORIASIS
  3. UNSPECIFIED ANALGESIC [Concomitant]

REACTIONS (8)
  - ABDOMINAL ADHESIONS [None]
  - HALLUCINATION [None]
  - HEADACHE [None]
  - HERNIA [None]
  - INJECTION SITE HAEMATOMA [None]
  - INJECTION SITE PAIN [None]
  - POSTOPERATIVE FEVER [None]
  - PSORIATIC ARTHROPATHY [None]
